FAERS Safety Report 10880877 (Version 1)
Quarter: 2015Q1

REPORT INFORMATION
  Report Type: Spontaneous
  Country: JP (occurrence: JP)
  Receive Date: 20150303
  Receipt Date: 20150303
  Transmission Date: 20150721
  Serious: Yes (Death, Other)
  Sender: FDA-Public Use
  Company Number: JP-CIPLA LTD.-2015JP01517

PATIENT

DRUGS (3)
  1. IRINOTECAN [Suspect]
     Active Substance: IRINOTECAN
     Indication: OVARIAN CANCER RECURRENT
     Dosage: 60 MG/M2 INFUSION OVER 90 MINUTES ON DAYS 1 AND 15
     Route: 042
  2. ANTIEMETIC [Concomitant]
     Indication: PROPHYLAXIS
  3. ETOPOSIDE. [Suspect]
     Active Substance: ETOPOSIDE
     Indication: OVARIAN CANCER RECURRENT
     Dosage: DAILY DOSE OF 50 MG/BODY WEIGHT FROM DAYS 1 TO 21
     Route: 048

REACTIONS (2)
  - Acute myeloid leukaemia [Unknown]
  - Acute respiratory failure [Fatal]
